FAERS Safety Report 12262458 (Version 2)
Quarter: 2017Q2

REPORT INFORMATION
  Report Type: Report from Study
  Country: JP (occurrence: JP)
  Receive Date: 20160413
  Receipt Date: 20170428
  Transmission Date: 20170830
  Serious: Yes (Other)
  Sender: FDA-Public Use
  Company Number: JP-BEH-2016061257

PATIENT
  Age: 14 Year
  Sex: Male
  Weight: 25.6 kg

DRUGS (7)
  1. MUCODYNE [Concomitant]
     Active Substance: CARBOCYSTEINE
     Route: 048
  2. CLARITH [Concomitant]
     Active Substance: CLARITHROMYCIN
     Route: 048
  3. ASVERIN (TIPEPIDINE HIBENZATE) [Concomitant]
     Active Substance: TIPEPIDINE HIBENZATE
     Route: 048
  4. SINGULAIR [Concomitant]
     Active Substance: MONTELUKAST SODIUM
     Route: 048
  5. MEIACT [Concomitant]
     Active Substance: CEFDITOREN PIVOXIL
     Route: 048
     Dates: start: 20150519, end: 20150524
  6. HIZENTRA [Suspect]
     Active Substance: HUMAN IMMUNOGLOBULIN G
     Indication: ATAXIA TELANGIECTASIA
     Route: 058
     Dates: start: 20141205, end: 20150603
  7. JUVELA [Concomitant]
     Active Substance: .ALPHA.-TOCOPHEROL\RETINOL
     Route: 048

REACTIONS (1)
  - Upper respiratory tract inflammation [Recovered/Resolved]

NARRATIVE: CASE EVENT DATE: 20150519
